FAERS Safety Report 25524402 (Version 1)
Quarter: 2025Q3

REPORT INFORMATION
  Report Type: Spontaneous
  Country: GB (occurrence: GB)
  Receive Date: 20250707
  Receipt Date: 20250707
  Transmission Date: 20251020
  Serious: Yes (Hospitalization)
  Sender: MYLAN
  Company Number: GB-MYLANLABS-2025M1055678

PATIENT
  Sex: Male

DRUGS (2)
  1. CLOZARIL [Suspect]
     Active Substance: CLOZAPINE
     Indication: Schizophrenia
     Dosage: UNK UNK, QD
     Dates: start: 20180327, end: 2025
  2. CLOZARIL [Suspect]
     Active Substance: CLOZAPINE
     Dosage: QD (AROUND 09-JUN-2025)
     Dates: start: 202506

REACTIONS (2)
  - Pancreatitis chronic [Unknown]
  - Treatment noncompliance [Unknown]

NARRATIVE: CASE EVENT DATE: 20250601
